FAERS Safety Report 8173150-4 (Version None)
Quarter: 2012Q1

REPORT INFORMATION
  Report Type: 
  Country: None (occurrence: None)
  Receive Date: 20120229
  Receipt Date: 20110315
  Transmission Date: 20120608
  Serious: No
  Sender: FDA-Public Use
  Company Number: US-GLAXOSMITHKLINE-A0919007A

PATIENT
  Age: 41 Year
  Sex: Female

DRUGS (3)
  1. GSK AUTOINJECTOR [Suspect]
     Indication: MIGRAINE
     Route: 058
     Dates: start: 20110308, end: 20110311
  2. UNKNOWN [Concomitant]
  3. SUMATRIPTAN SUCCINATE [Suspect]
     Indication: MIGRAINE
     Dosage: 6MG UNKNOWN
     Route: 058
     Dates: start: 20110308, end: 20110311

REACTIONS (7)
  - PRODUCT QUALITY ISSUE [None]
  - HEADACHE [None]
  - DRUG INEFFECTIVE [None]
  - INJECTION SITE SWELLING [None]
  - INJECTION SITE PAIN [None]
  - PYREXIA [None]
  - INJECTION SITE RASH [None]
